FAERS Safety Report 25375037 (Version 1)
Quarter: 2025Q2

REPORT INFORMATION
  Report Type: Spontaneous
  Country: US (occurrence: None)
  Receive Date: 20250529
  Receipt Date: 20250529
  Transmission Date: 20250716
  Serious: Yes (Life-Threatening, Hospitalization)
  Sender: FDA-CTU
  Company Number: None

PATIENT
  Age: 39 Year
  Sex: Female
  Weight: 57.1 kg

DRUGS (9)
  1. RIVAROXABAN [Suspect]
     Active Substance: RIVAROXABAN
     Indication: Pulmonary embolism
     Dosage: FREQUENCY : TWICE A DAY;?
     Route: 048
     Dates: start: 20250213, end: 20250311
  2. RIVAROXABAN [Suspect]
     Active Substance: RIVAROXABAN
     Indication: Deep vein thrombosis
  3. RIVAROXABAN [Suspect]
     Active Substance: RIVAROXABAN
     Indication: Deep vein thrombosis
  4. Cyclobenzaprine 10mg PRN [Concomitant]
  5. Zolipidem 10mg PRN HS [Concomitant]
  6. Lorazepam 0.5mg QD PRN [Concomitant]
  7. Nortriptyline 25mg QD [Concomitant]
  8. Medroxyprogesterone 10mg 2QD [Concomitant]
  9. Metoclopramide 5mg TID PRN NV [Concomitant]

REACTIONS (2)
  - Vaginal haemorrhage [None]
  - Blood loss anaemia [None]

NARRATIVE: CASE EVENT DATE: 20250311
